FAERS Safety Report 5705710-1 (Version None)
Quarter: 2008Q2

REPORT INFORMATION
  Report Type: 
  Country: None (occurrence: None)
  Receive Date: 20080415
  Receipt Date: 20080408
  Transmission Date: 20081010
  Serious: Yes (Death, Hospitalization)
  Sender: FDA-Public Use
  Company Number: A0721634A

PATIENT
  Age: 79 Year
  Sex: Male

DRUGS (4)
  1. AVODART [Suspect]
     Dosage: .5MG PER DAY
     Route: 048
     Dates: start: 20080306, end: 20080306
  2. FLOMAX [Suspect]
     Route: 048
  3. ANTIDEPRESSANTS [Concomitant]
  4. SYNTHROID [Concomitant]

REACTIONS (7)
  - CERVICAL VERTEBRAL FRACTURE [None]
  - DIZZINESS [None]
  - FACIAL BONES FRACTURE [None]
  - FALL [None]
  - PARKINSON'S DISEASE [None]
  - PNEUMONIA [None]
  - RENAL FAILURE [None]
